FAERS Safety Report 20757747 (Version 1)
Quarter: 2022Q2

REPORT INFORMATION
  Report Type: Spontaneous
  Country: US (occurrence: US)
  Receive Date: 20220427
  Receipt Date: 20220427
  Transmission Date: 20220721
  Serious: No
  Sender: FDA-Public Use
  Company Number: US-PFIZER INC-2021823166

PATIENT
  Age: 74 Year
  Sex: Male

DRUGS (5)
  1. BRAFTOVI [Suspect]
     Active Substance: ENCORAFENIB
     Indication: Lung neoplasm malignant
     Dosage: 225 MG
  2. BRAFTOVI [Suspect]
     Active Substance: ENCORAFENIB
     Dosage: 225 MG, DAILY (75 MG TAKE 3 PO Q DAY)
     Route: 048
  3. BRAFTOVI [Suspect]
     Active Substance: ENCORAFENIB
     Dosage: 75 MG 2 TABLETS PO E DAY 60
  4. MEKTOVI [Suspect]
     Active Substance: BINIMETINIB
     Indication: Lung neoplasm malignant
     Dosage: 30 MG
  5. MEKTOVI [Suspect]
     Active Substance: BINIMETINIB
     Dosage: MEKTOVI 15 MG 2 TABLETS PO E AM 1 TABLET PO E PM (E 12 HR) 90

REACTIONS (2)
  - Off label use [Unknown]
  - Chloasma [Unknown]
